FAERS Safety Report 7502497-7 (Version None)
Quarter: 2011Q2

REPORT INFORMATION
  Report Type: 
  Country: None (occurrence: None)
  Receive Date: 20110523
  Receipt Date: 20110523
  Transmission Date: 20111010
  Serious: Yes (Hospitalization)
  Sender: FDA-Public Use
  Company Number: None

PATIENT
  Age: 47 Year
  Sex: Female
  Weight: 50 kg

DRUGS (1)
  1. DICLOFENAC SODIUM [Suspect]
     Indication: PAIN MANAGEMENT
     Dosage: 75MG 2X DAILY ORALLY
     Route: 048
     Dates: start: 20110101, end: 20110415

REACTIONS (1)
  - PAIN IN JAW [None]
